FAERS Safety Report 4687707-6 (Version None)
Quarter: 2005Q2

REPORT INFORMATION
  Report Type: 
  Country: None (occurrence: None)
  Receive Date: 20050610
  Receipt Date: 20050606
  Transmission Date: 20051028
  Serious: Yes (Hospitalization, Other)
  Sender: FDA-Public Use
  Company Number: 200515267GDDC

PATIENT
  Age: 33 Year
  Sex: Female

DRUGS (2)
  1. KETEK [Suspect]
     Indication: BRONCHITIS
     Route: 048
     Dates: start: 20050301, end: 20050301
  2. INDERAL [Concomitant]
     Indication: MIGRAINE PROPHYLAXIS
     Route: 048

REACTIONS (3)
  - ARTHRALGIA [None]
  - ARTHRITIS BACTERIAL [None]
  - GAIT DISTURBANCE [None]
